FAERS Safety Report 15632289 (Version 1)
Quarter: 2018Q4

REPORT INFORMATION
  Report Type: Report from Study
  Country: US (occurrence: US)
  Receive Date: 20181119
  Receipt Date: 20181119
  Transmission Date: 20190205
  Serious: Yes (Hospitalization, Disabling, Other)
  Sender: FDA-Public Use
  Company Number: US-EMD SERONO-E2B_80078996

PATIENT
  Sex: Male

DRUGS (6)
  1. REBIF [Suspect]
     Active Substance: INTERFERON BETA-1A
     Indication: RELAPSING-REMITTING MULTIPLE SCLEROSIS
     Route: 058
     Dates: start: 20030310
  2. ZOLOFT [Concomitant]
     Active Substance: SERTRALINE HYDROCHLORIDE
     Indication: PRODUCT USED FOR UNKNOWN INDICATION
  3. REBIF [Interacting]
     Active Substance: INTERFERON BETA-1A
     Indication: SECONDARY PROGRESSIVE MULTIPLE SCLEROSIS
     Route: 058
     Dates: start: 2004
  4. ZANAFLEX [Concomitant]
     Active Substance: TIZANIDINE HYDROCHLORIDE
     Indication: PRODUCT USED FOR UNKNOWN INDICATION
  5. BACLOFEN. [Concomitant]
     Active Substance: BACLOFEN
     Indication: PRODUCT USED FOR UNKNOWN INDICATION
  6. COUMADIN [Concomitant]
     Active Substance: WARFARIN SODIUM
     Indication: PRODUCT USED FOR UNKNOWN INDICATION

REACTIONS (15)
  - Off label use [Not Recovered/Not Resolved]
  - Gait inability [Unknown]
  - Injection site induration [Not Recovered/Not Resolved]
  - Extremity contracture [Not Recovered/Not Resolved]
  - Injection site infection [Not Recovered/Not Resolved]
  - Cellulitis [Unknown]
  - Injection site reaction [Unknown]
  - Muscle spasms [Recovering/Resolving]
  - Peripheral venous disease [Unknown]
  - Injection site discolouration [Not Recovered/Not Resolved]
  - Injection site mass [Not Recovered/Not Resolved]
  - Secondary progressive multiple sclerosis [Not Recovered/Not Resolved]
  - Weight decreased [Unknown]
  - Surgery [Unknown]
  - Lack of injection site rotation [Not Recovered/Not Resolved]

NARRATIVE: CASE EVENT DATE: 2015
